FAERS Safety Report 8373072-X (Version None)
Quarter: 2012Q2

REPORT INFORMATION
  Report Type: 
  Country: None (occurrence: None)
  Receive Date: 20120521
  Receipt Date: 20120510
  Transmission Date: 20120825
  Serious: Yes (Other)
  Sender: FDA-Public Use
  Company Number: PHEH2011US009644

PATIENT
  Sex: Female

DRUGS (5)
  1. SEPTRA [Concomitant]
  2. TOBI [Suspect]
     Indication: BRONCHIECTASIS
     Dates: start: 20111031
  3. FLOVENT [Concomitant]
  4. TOBI [Suspect]
     Indication: PSEUDOMONAS INFECTION
     Dosage: 300 MG, BID
  5. FLOVENT [Concomitant]
     Dates: start: 20111031

REACTIONS (4)
  - DEVICE MALFUNCTION [None]
  - DYSPHONIA [None]
  - CHEST DISCOMFORT [None]
  - FEELING ABNORMAL [None]
